FAERS Safety Report 8979214 (Version 1)
Quarter: 2012Q4

REPORT INFORMATION
  Report Type: 
  Country: FR (occurrence: FR)
  Receive Date: 20121221
  Receipt Date: 20121221
  Transmission Date: 20130627
  Serious: Yes (Hospitalization)
  Sender: FDA-Public Use
  Company Number: FR-GLAXOSMITHKLINE-B0852706A

PATIENT
  Age: 77 None
  Sex: Male

DRUGS (8)
  1. REVOLADE [Suspect]
     Indication: AUTOIMMUNE THROMBOCYTOPENIA
     Dosage: 75MG Per day
     Route: 048
     Dates: start: 201201, end: 20120913
  2. SOTALOL [Concomitant]
     Route: 065
  3. APROVEL [Concomitant]
     Route: 065
  4. CODOLIPRANE [Concomitant]
     Route: 065
  5. MANIDIPINE [Concomitant]
     Route: 065
  6. LIPANTHYL [Concomitant]
     Route: 065
  7. LEVOTHYROX [Concomitant]
     Route: 065
  8. ORACILLINE [Concomitant]
     Route: 065

REACTIONS (6)
  - Deep vein thrombosis [Recovering/Resolving]
  - Pulmonary embolism [Recovered/Resolved]
  - Pain in extremity [Recovering/Resolving]
  - Oedema peripheral [Recovering/Resolving]
  - Dyspnoea [Recovered/Resolved]
  - Dyspnoea exertional [Recovered/Resolved]
